FAERS Safety Report 8829913 (Version 2)
Quarter: 2012Q4

REPORT INFORMATION
  Report Type: 
  Country: AU (occurrence: AU)
  Receive Date: 20121008
  Receipt Date: 20121112
  Transmission Date: 20130627
  Serious: Yes (Life-Threatening)
  Sender: FDA-Public Use
  Company Number: AU-ASTRAZENECA-2012SE47038

PATIENT
  Age: 29686 Day
  Sex: Female

DRUGS (11)
  1. NEXIUM [Suspect]
     Indication: GASTROOESOPHAGEAL REFLUX DISEASE
     Route: 048
     Dates: start: 201205, end: 2012
  2. MULTIPLE OTHER MEDICATIONS [Concomitant]
  3. ASPIRIN [Concomitant]
  4. BIO MAGNESIUM [Concomitant]
     Dosage: 440 MG/175MG/50MG/50MG/100 UNITS/4MG TWO TIMES A DAY
  5. BION TEARS EYE DROPS [Concomitant]
     Dosage: 0.3%/0.1% AS REQUIRED
  6. CALCITRIOL [Concomitant]
  7. CALTRATE [Concomitant]
     Dosage: 1.500MG EQUIVALENT TO 600MG Ca DAILY
  8. COVERAM [Concomitant]
     Dosage: 10MG/10MG DAILY
  9. EVISTA [Concomitant]
  10. PANADOL OSTEO [Concomitant]
     Dosage: 665 MG 2 THREE TIMES A DAY
  11. PERINDOPRIL [Concomitant]

REACTIONS (2)
  - Hypocalcaemia [Recovered/Resolved]
  - Hypomagnesaemia [Recovered/Resolved]
